FAERS Safety Report 6282991-X (Version None)
Quarter: 2009Q3

REPORT INFORMATION
  Report Type: 
  Country: None (occurrence: None)
  Receive Date: 20090724
  Receipt Date: 20090716
  Transmission Date: 20100115
  Serious: Yes (Hospitalization)
  Sender: FDA-Public Use
  Company Number: PHHO2009EC08954

PATIENT
  Sex: Female
  Weight: 22 kg

DRUGS (2)
  1. ELIDEL ASM+CRE [Suspect]
     Indication: DERMATITIS ATOPIC
     Dosage: APPLIED TWICE DAILY
     Route: 061
     Dates: start: 20040923
  2. ELOMET [Suspect]
     Indication: DERMATITIS ATOPIC
     Dosage: APPLIED ONE DAILY
     Route: 061

REACTIONS (3)
  - PYREXIA [None]
  - SALMONELLOSIS [None]
  - VOMITING [None]
